FAERS Safety Report 4367217-6 (Version None)
Quarter: 2004Q2

REPORT INFORMATION
  Report Type: 
  Country: None (occurrence: None)
  Receive Date: 20040526
  Receipt Date: 20040513
  Transmission Date: 20050107
  Serious: Yes (Death)
  Sender: FDA-Public Use
  Company Number: 2004-116102-NL

PATIENT
  Age: 86 Year
  Sex: Female
  Weight: 68 kg

DRUGS (13)
  1. REMERON [Suspect]
     Indication: MAJOR DEPRESSION
     Dosage: ORAL, TOTAL DAILY DOSE 37.5 MG
     Dates: start: 20031231, end: 20040119
  2. REMERON SOLTAB [Suspect]
     Dosage: TOTAL DAILY DOSE 37.5 MG
     Dates: start: 20031231
  3. EFFEXOR [Suspect]
     Indication: MAJOR DEPRESSION
     Dosage: 300 MG QD ORAL
     Route: 048
     Dates: start: 20031231, end: 20040119
  4. NORVASC [Suspect]
     Indication: HYPERTENSION
     Dosage: 5 MG QD ORAL
     Route: 048
     Dates: start: 20031222, end: 20040119
  5. TYLENOL [Suspect]
     Dosage: NO DOSES WERE ADMINISTERED
  6. LANOXIN [Concomitant]
  7. LASIX [Concomitant]
  8. HUMIBID [Concomitant]
  9. PREVACID [Concomitant]
  10. MEGACE [Concomitant]
  11. SINGULAIR ^DIECKMANN^ [Concomitant]
  12. K-DUR 10 [Concomitant]
  13. NEOSPORIN OPHTHALMIC SOLUTION [Concomitant]

REACTIONS (2)
  - ASTHENIA [None]
  - HEPATIC FAILURE [None]
